FAERS Safety Report 4821859-X (Version None)
Quarter: 2005Q4

REPORT INFORMATION
  Report Type: 
  Country: None (occurrence: None)
  Receive Date: 20051103
  Receipt Date: 20051014
  Transmission Date: 20060501
  Serious: Yes (Death, Other)
  Sender: FDA-Public Use
  Company Number: DE_050917087

PATIENT
  Age: 78 Year
  Sex: Male

DRUGS (3)
  1. XIGRIS [Suspect]
     Indication: SEPSIS
     Dosage: UNK
     Route: 065
     Dates: start: 20050901
  2. MARCUMAR [Concomitant]
  3. ANTIBIOTIC [Concomitant]

REACTIONS (2)
  - SEPSIS [None]
  - THROMBOCYTOPENIA [None]
